FAERS Safety Report 6142780-3 (Version None)
Quarter: 2009Q2

REPORT INFORMATION
  Report Type: 
  Country: None (occurrence: None)
  Receive Date: 20090403
  Receipt Date: 20090323
  Transmission Date: 20091009
  Serious: Yes (Hospitalization)
  Sender: FDA-Public Use
  Company Number: FR-BAYER-200915515GPV

PATIENT
  Age: 62 Year
  Sex: Male

DRUGS (5)
  1. FLUDARABINE PHOSPHATE [Suspect]
     Indication: CHRONIC LYMPHOCYTIC LEUKAEMIA
     Dosage: TOTAL DAILY DOSE: 120 MG
     Route: 048
     Dates: start: 20071203, end: 20080506
  2. CYCLOPHOSPHAMIDE [Suspect]
     Indication: CHRONIC LYMPHOCYTIC LEUKAEMIA
     Dosage: TOTAL DAILY DOSE: 1200 MG
     Route: 048
     Dates: start: 20071203, end: 20080506
  3. RITUXAN [Suspect]
     Indication: CHRONIC LYMPHOCYTIC LEUKAEMIA
     Dosage: DOSE DEPENDS ON CYCLE , DAY 1
     Dates: start: 20071203, end: 20081117
  4. NEORECORMON [Concomitant]
     Dosage: 3 INJECTIONS
     Dates: start: 20080101, end: 20080101
  5. GRANOCYTE [Concomitant]
     Dosage: AT EACH CHEMOTHERAPY CYCLE FROM JAN-2008
     Dates: start: 20080101

REACTIONS (1)
  - LUNG NEOPLASM MALIGNANT [None]
